FAERS Safety Report 8544327 (Version 4)
Quarter: 2012Q4

REPORT INFORMATION
  Report Type: Report from Study
  Country: DE (occurrence: DE)
  Receive Date: 20120503
  Receipt Date: 20120927
  Transmission Date: 20130627
  Serious: Yes (Hospitalization, Other)
  Sender: FDA-Public Use
  Company Number: DE-ABBOTT-12P-062-0929727-00

PATIENT
  Age: 69 None
  Sex: Male
  Weight: 70 kg

DRUGS (12)
  1. HUMIRA 40 MG/ 0.8 ML PRE-FILLED SYRINGE [Suspect]
     Indication: PSORIATIC ARTHROPATHY
     Route: 058
     Dates: start: 2006, end: 201202
  2. MTX [Suspect]
     Indication: PRODUCT USED FOR UNKNOWN INDICATION
  3. FUMADERM [Suspect]
     Indication: PRODUCT USED FOR UNKNOWN INDICATION
  4. NEOTIGASON [Suspect]
     Indication: PRODUCT USED FOR UNKNOWN INDICATION
  5. CYCLOSPORINE [Suspect]
     Indication: PRODUCT USED FOR UNKNOWN INDICATION
  6. DICLOFENAC [Concomitant]
     Indication: PRODUCT USED FOR UNKNOWN INDICATION
  7. IBUFLAM [Concomitant]
     Indication: PSORIATIC ARTHROPATHY
     Dates: start: 20120312
  8. VALORON N RETARD [Concomitant]
     Indication: PSORIATIC ARTHROPATHY
     Dosage: 50 mg NOS /four times a day
     Dates: start: 20120312
  9. DAIVOBET [Concomitant]
     Indication: PSORIASIS
  10. TILIDINE + NALOXONE (VALORON) [Concomitant]
     Indication: PRODUCT USED FOR UNKNOWN INDICATION
  11. PANTOPRAZOLE [Concomitant]
     Indication: PRODUCT USED FOR UNKNOWN INDICATION
  12. IBUPROFEN [Concomitant]
     Indication: PRODUCT USED FOR UNKNOWN INDICATION

REACTIONS (3)
  - Lung neoplasm malignant [Unknown]
  - Lung adenocarcinoma [Not Recovered/Not Resolved]
  - Metastases to bone [Not Recovered/Not Resolved]
